FAERS Safety Report 10152506 (Version 1)
Quarter: 2014Q2

REPORT INFORMATION
  Report Type: Spontaneous
  Country: US (occurrence: US)
  Receive Date: 20140505
  Receipt Date: 20140505
  Transmission Date: 20141212
  Serious: No
  Sender: FDA-Public Use
  Company Number: US-BAYER-2014-065256

PATIENT
  Age: 19 Year
  Sex: Female

DRUGS (1)
  1. ALEVE CAPLET [Suspect]
     Indication: DYSMENORRHOEA
     Dosage: 3 DF, ONCE
     Route: 048
     Dates: start: 20140429, end: 20140429

REACTIONS (1)
  - Inappropriate schedule of drug administration [None]
